FAERS Safety Report 18582544 (Version 1)
Quarter: 2020Q4

REPORT INFORMATION
  Report Type: Spontaneous
  Country: GB (occurrence: GB)
  Receive Date: 20201205
  Receipt Date: 20201205
  Transmission Date: 20210114
  Serious: Yes (Other)
  Sender: FDA-Public Use
  Company Number: GB-ACCORD-209963

PATIENT
  Age: 51 Year
  Sex: Male
  Weight: 96 kg

DRUGS (10)
  1. AMLODIPINE [Suspect]
     Active Substance: AMLODIPINE BESYLATE
     Indication: PRODUCT USED FOR UNKNOWN INDICATION
     Dates: start: 20200611
  2. PROCTOSEDYL [Concomitant]
     Active Substance: DIBUCAINE HYDROCHLORIDE\HYDROCORTISONE
     Dosage: INSERT
     Dates: start: 20200826, end: 20200830
  3. MEBEVERINE [Concomitant]
     Active Substance: MEBEVERINE
     Dates: start: 20201027
  4. ACETYLSALICYLIC ACID [Concomitant]
     Active Substance: ASPIRIN
     Dates: start: 20200701
  5. LOSARTAN. [Concomitant]
     Active Substance: LOSARTAN
     Dates: start: 20191220
  6. CLENIL MODULITE [Concomitant]
     Active Substance: BECLOMETHASONE DIPROPIONATE
     Route: 055
     Dates: start: 20191231
  7. FELODIPINE. [Concomitant]
     Active Substance: FELODIPINE
     Dates: start: 20201111
  8. SALBUTAMOL [Concomitant]
     Active Substance: ALBUTEROL
     Route: 055
     Dates: start: 20180202
  9. MARIOSEA XL [Concomitant]
     Dates: start: 20201020
  10. ROSUVASTATIN. [Concomitant]
     Active Substance: ROSUVASTATIN
     Dates: start: 20200702

REACTIONS (2)
  - Gingival pain [Not Recovered/Not Resolved]
  - Periodontal disease [Unknown]

NARRATIVE: CASE EVENT DATE: 20201111
